FAERS Safety Report 9718727 (Version 1)
Quarter: 2013Q4

REPORT INFORMATION
  Report Type: Not Available
  Country: US (occurrence: US)
  Receive Date: 20131125
  Receipt Date: 20131125
  Transmission Date: 20140711
  Serious: No
  Sender: FDA-Public Use
  Company Number: US-H. LUNDBECK A/S-DKLU1093362

PATIENT
  Age: 14 Year
  Sex: Female

DRUGS (3)
  1. ONFI [Suspect]
     Indication: PETIT MAL EPILEPSY
     Route: 048
     Dates: start: 201308
  2. ONFI [Suspect]
     Indication: GRAND MAL CONVULSION
  3. LAMICTAL [Concomitant]
     Indication: CONVULSION
     Route: 048

REACTIONS (1)
  - Insomnia [Unknown]
